FAERS Safety Report 5643810-5 (Version None)
Quarter: 2008Q1

REPORT INFORMATION
  Report Type: 
  Country: None (occurrence: None)
  Receive Date: 20080228
  Receipt Date: 20080218
  Transmission Date: 20080703
  Serious: Yes (Other)
  Sender: FDA-Public Use
  Company Number: GB-MERCK-0802GBR00072

PATIENT
  Age: 77 Year
  Sex: Female

DRUGS (3)
  1. FOSAMAX [Suspect]
     Route: 048
     Dates: start: 20070925, end: 20080122
  2. OXYCODONE HYDROCHLORIDE [Concomitant]
     Route: 048
     Dates: start: 20060608
  3. TRAMADOL HYDROCHLORIDE [Concomitant]
     Route: 048
     Dates: start: 20060620

REACTIONS (3)
  - CHEST PAIN [None]
  - DYSPNOEA [None]
  - PAIN [None]
